FAERS Safety Report 23825724 (Version 1)
Quarter: 2024Q2

REPORT INFORMATION
  Report Type: Spontaneous
  Country: CN (occurrence: CN)
  Receive Date: 20240507
  Receipt Date: 20240507
  Transmission Date: 20240716
  Serious: Yes (Other)
  Sender: FDA-Public Use
  Company Number: CN-PFIZER INC-PV202400059042

PATIENT
  Age: 29 Year
  Sex: Female

DRUGS (8)
  1. HEMABATE [Suspect]
     Active Substance: CARBOPROST TROMETHAMINE
     Indication: Postpartum haemorrhage
     Dosage: 1 ML, 1X/DAY
     Route: 030
     Dates: start: 20240426, end: 20240426
  2. HEMABATE [Suspect]
     Active Substance: CARBOPROST TROMETHAMINE
     Indication: Perineal injury
  3. HEMABATE [Suspect]
     Active Substance: CARBOPROST TROMETHAMINE
     Indication: Delivery
  4. HEMABATE [Suspect]
     Active Substance: CARBOPROST TROMETHAMINE
     Indication: Uterine leiomyoma
  5. HEMABATE [Suspect]
     Active Substance: CARBOPROST TROMETHAMINE
     Indication: Uterine hypotonus
  6. HEMABATE [Suspect]
     Active Substance: CARBOPROST TROMETHAMINE
     Indication: Placenta accreta
  7. HEMABATE [Suspect]
     Active Substance: CARBOPROST TROMETHAMINE
     Indication: In vitro fertilisation
  8. HEMABATE [Suspect]
     Active Substance: CARBOPROST TROMETHAMINE
     Indication: Delivery

REACTIONS (5)
  - Nausea [Recovered/Resolved]
  - Vomiting [Recovered/Resolved]
  - Abdominal pain [Recovered/Resolved]
  - Diarrhoea [Recovered/Resolved]
  - Off label use [Unknown]

NARRATIVE: CASE EVENT DATE: 20240426
